FAERS Safety Report 24075787 (Version 1)
Quarter: 2024Q3

REPORT INFORMATION
  Report Type: Spontaneous
  Country: FR (occurrence: FR)
  Receive Date: 20240710
  Receipt Date: 20240710
  Transmission Date: 20241017
  Serious: Yes (Hospitalization)
  Sender: MERCK
  Company Number: None

PATIENT
  Age: 78 Year
  Sex: Male
  Weight: 85 kg

DRUGS (1)
  1. PEMBROLIZUMAB [Suspect]
     Active Substance: PEMBROLIZUMAB
     Indication: Bronchial carcinoma
     Dosage: 400 MG
     Route: 042
     Dates: start: 202208, end: 20240403

REACTIONS (3)
  - Asthenia [Recovered/Resolved]
  - Diplopia [Recovered/Resolved]
  - Eczema [Recovered/Resolved]

NARRATIVE: CASE EVENT DATE: 20220901
